FAERS Safety Report 21827579 (Version 1)
Quarter: 2023Q1

REPORT INFORMATION
  Report Type: Spontaneous
  Country: GB (occurrence: GB)
  Receive Date: 20230106
  Receipt Date: 20230106
  Transmission Date: 20230418
  Serious: Yes (Life-Threatening, Other)
  Sender: FDA-Public Use
  Company Number: None

PATIENT

DRUGS (11)
  1. PREDNISOLONE [Interacting]
     Active Substance: PREDNISOLONE
     Dosage: 5 MG, QD (TABLET)
     Dates: start: 20220630
  2. POTASSIUM BICARBONATE\SODIUM ALGINATE [Interacting]
     Active Substance: POTASSIUM BICARBONATE\SODIUM ALGINATE
     Dosage: 10 ML, QID (FOR 6-8 WEEKS), PEPPERMINT
     Dates: start: 20220711
  3. BALNEUM PLUS CREAM [Concomitant]
     Dosage: UNK (APPLY SEVERAL TIMES A DAY)
     Dates: start: 20220721
  4. CALCIUM CARBONATE\CHOLECALCIFEROL [Concomitant]
     Active Substance: CALCIUM CARBONATE\CHOLECALCIFEROL
     Dosage: 1 DOSAGE FORM, BID
     Dates: start: 20220622
  5. FLUCLOXACILLIN [Concomitant]
     Active Substance: FLUCLOXACILLIN
     Dosage: 500 MG, QID
     Dates: start: 20220721
  6. HYDROCORTISONE [Concomitant]
     Active Substance: HYDROCORTISONE
     Dosage: 2 DOSAGE FORM, QD (7-10 DAYS)
     Dates: start: 20220615
  7. LEVOTHYROXINE [Concomitant]
     Active Substance: LEVOTHYROXINE
     Dosage: 25 UG, QD
     Dates: start: 20220822
  8. POLYETHYLENE GLYCOL 3350\POTASSIUM CHLORIDE\SODIUM BICARBONATE\SODIUM [Concomitant]
     Active Substance: POLYETHYLENE GLYCOL 3350\POTASSIUM CHLORIDE\SODIUM BICARBONATE\SODIUM CHLORIDE
     Dosage: UNK, PRN (ORANGE SACHETS SUGAR FREE (GALEN LTD)
     Dates: start: 20220722
  9. MENTHOL [Concomitant]
     Active Substance: MENTHOL
     Dosage: UNK, PRN (WHEN REQUIRED)
     Dates: start: 20220725
  10. OMEPRAZOLE [Concomitant]
     Active Substance: OMEPRAZOLE
     Dosage: 20 MG, BID (FOR 6-8 WEEKS)
     Dates: start: 20220624
  11. ZOPICLONE [Concomitant]
     Active Substance: ZOPICLONE
     Dosage: 3.75 MG, QD (AT NIGHT)
     Dates: start: 20220822

REACTIONS (2)
  - Adrenocortical insufficiency acute [Recovering/Resolving]
  - Drug interaction [Unknown]

NARRATIVE: CASE EVENT DATE: 20220817
